FAERS Safety Report 19139572 (Version 1)
Quarter: 2021Q2

REPORT INFORMATION
  Report Type: Spontaneous
  Country: CA (occurrence: CA)
  Receive Date: 20210415
  Receipt Date: 20210415
  Transmission Date: 20210717
  Serious: Yes (Other)
  Sender: FDA-Public Use
  Company Number: CA-PFIZER INC-2021386429

PATIENT
  Age: 74 Year
  Sex: Female

DRUGS (3)
  1. METHOTREXATE SODIUM. [Suspect]
     Active Substance: METHOTREXATE SODIUM
     Dosage: 1 DF
  2. SHINGRIX [Concomitant]
     Active Substance: RECOMBINANT VARICELLA ZOSTER VIRUS (VZV) GLYCOPROTEIN E
     Indication: IMMUNISATION
  3. STELARA [Concomitant]
     Active Substance: USTEKINUMAB
     Dosage: 1 DF

REACTIONS (10)
  - Urine output decreased [Unknown]
  - Cough [Not Recovered/Not Resolved]
  - Urinary tract infection [Unknown]
  - Dysphonia [Not Recovered/Not Resolved]
  - Chromaturia [Not Recovered/Not Resolved]
  - Myalgia [Unknown]
  - Tendon pain [Unknown]
  - Throat irritation [Not Recovered/Not Resolved]
  - Psoriatic arthropathy [Unknown]
  - Micturition urgency [Not Recovered/Not Resolved]

NARRATIVE: CASE EVENT DATE: 2021
